FAERS Safety Report 8379544-6 (Version None)
Quarter: 2012Q1

REPORT INFORMATION
  Report Type: 
  Country: None (occurrence: None)
  Receive Date: 20120323
  Receipt Date: 20110325
  Transmission Date: 20120608
  Serious: Yes (Other)
  Sender: FDA-Public Use
  Company Number: 163-21880-11033141

PATIENT
  Age: 74 Year
  Sex: Male

DRUGS (3)
  1. REVLIMID [Suspect]
     Indication: MULTIPLE MYELOMA
     Dosage: 15 MG, 1 IN 1 D, PO; 10-15MG, DAILY, PO; 10 MG, QD X 21 D, PO
     Route: 048
     Dates: start: 20070401, end: 20080101
  2. REVLIMID [Suspect]
     Indication: MULTIPLE MYELOMA
     Dosage: 15 MG, 1 IN 1 D, PO; 10-15MG, DAILY, PO; 10 MG, QD X 21 D, PO
     Route: 048
     Dates: start: 20100701
  3. REVLIMID [Suspect]
     Indication: MULTIPLE MYELOMA
     Dosage: 15 MG, 1 IN 1 D, PO; 10-15MG, DAILY, PO; 10 MG, QD X 21 D, PO
     Route: 048
     Dates: start: 20080801, end: 20100101

REACTIONS (1)
  - RED BLOOD CELL COUNT DECREASED [None]
